FAERS Safety Report 9394818 (Version 1)
Quarter: 2013Q3

REPORT INFORMATION
  Report Type: Spontaneous
  Country: TR (occurrence: None)
  Receive Date: 20130705
  Receipt Date: 20130705
  Transmission Date: 20140515
  Serious: Yes (Hospitalization)
  Sender: FDA-Public Use
  Company Number: IMP_06732_2013

PATIENT
  Age: 53 Year
  Sex: Female

DRUGS (5)
  1. ANASTROZOLE [Suspect]
     Indication: CANCER HORMONAL THERAPY
     Dosage: DF
     Dates: start: 200606, end: 200707
  2. RAMIPRIL [Concomitant]
  3. METOPROLOL [Concomitant]
  4. ACETYLSALICYLIC ACID [Concomitant]
  5. CLOPIDOGREL [Concomitant]

REACTIONS (2)
  - Retinal artery occlusion [None]
  - Blindness [None]
